FAERS Safety Report 5456232-7 (Version None)
Quarter: 2007Q3

REPORT INFORMATION
  Report Type: 
  Country: None (occurrence: None)
  Receive Date: 20070918
  Receipt Date: 20070425
  Transmission Date: 20080115
  Serious: Yes (Hospitalization, Disabling)
  Sender: FDA-Public Use
  Company Number: US-ASTRAZENECA-2006UW23183

PATIENT
  Age: 517 Month
  Sex: Female

DRUGS (2)
  1. SEROQUEL [Suspect]
     Indication: DEPRESSION
     Route: 048
     Dates: start: 20040101, end: 20040901
  2. ABILIFY [Concomitant]

REACTIONS (2)
  - OVERDOSE [None]
  - TYPE 2 DIABETES MELLITUS [None]
